FAERS Safety Report 4640995-4 (Version None)
Quarter: 2005Q2

REPORT INFORMATION
  Report Type: 
  Country: None (occurrence: None)
  Receive Date: 20050421
  Receipt Date: 20050405
  Transmission Date: 20051028
  Serious: Yes (Other)
  Sender: FDA-Public Use
  Company Number: TR-BOEHRINGER INGELHEIM PHARMACEUTICALS, INC.-2005-DE-01331GD

PATIENT
  Age: 30 Year
  Sex: Female

DRUGS (5)
  1. ALPRAZOLAM [Suspect]
  2. NEFAZODONE HCL [Suspect]
  3. ZUCLOPENTIXOL [Suspect]
  4. CLONAZEPAM [Suspect]
  5. FLUOXETINE [Suspect]

REACTIONS (2)
  - DRUG EXPOSURE DURING PREGNANCY [None]
  - PREMATURE LABOUR [None]
